FAERS Safety Report 7300670-4 (Version None)
Quarter: 2011Q1

REPORT INFORMATION
  Report Type: 
  Country: None (occurrence: None)
  Receive Date: 20110207
  Receipt Date: 20110128
  Transmission Date: 20110831
  Serious: Yes (Hospitalization, Other)
  Sender: FDA-Public Use
  Company Number: LEO-2010-01119

PATIENT
  Age: 69 Year
  Sex: Male

DRUGS (1)
  1. INNOHEP [Suspect]
     Indication: LUNG NEOPLASM MALIGNANT
     Dosage: (1 IN 1 D),SUBCUTANEOUS
     Route: 058
     Dates: start: 20100424, end: 20100522

REACTIONS (5)
  - DEEP VEIN THROMBOSIS [None]
  - SCAR [None]
  - PULMONARY EMBOLISM [None]
  - HYPOVENTILATION [None]
  - PAIN [None]
